FAERS Safety Report 9376849 (Version 1)
Quarter: 2013Q3

REPORT INFORMATION
  Report Type: Report from Study
  Country: CA (occurrence: CA)
  Receive Date: 20130701
  Receipt Date: 20130701
  Transmission Date: 20140515
  Serious: Yes (Hospitalization)
  Sender: FDA-Public Use
  Company Number: CA-JNJFOC-20130605896

PATIENT
  Age: 66 Year
  Sex: Female
  Weight: 67.8 kg

DRUGS (9)
  1. REMICADE [Suspect]
     Indication: RHEUMATOID ARTHRITIS
     Dosage: (ONCE EVERY 0, 2, 6, 8 WEEKS)
     Route: 042
     Dates: start: 20121105
  2. HYDROXYCHLOROQUINE [Concomitant]
     Indication: RHEUMATOID ARTHRITIS
     Route: 048
     Dates: start: 20121212
  3. FUROSEMIDE [Concomitant]
     Indication: HYPERTENSION
     Route: 048
     Dates: start: 2001
  4. POTASSIUM [Concomitant]
     Indication: PROPHYLAXIS
     Route: 048
     Dates: start: 2001
  5. WARFARIN [Concomitant]
     Indication: PROPHYLAXIS
     Route: 048
     Dates: start: 2001
  6. FOSINOPRIL [Concomitant]
     Indication: HYPERTENSION
     Route: 048
     Dates: start: 1995
  7. BISOPROLOL [Concomitant]
     Indication: HYPERTENSION
     Route: 048
     Dates: start: 2001
  8. LIPITOR [Concomitant]
     Indication: HYPERCHOLESTEROLAEMIA
     Route: 048
     Dates: start: 1995
  9. VITAMIN D [Concomitant]
     Indication: MEDICAL DIET
     Route: 048
     Dates: start: 2011

REACTIONS (2)
  - Acute myocardial infarction [Recovered/Resolved]
  - Cardiac failure congestive [Recovered/Resolved]
